FAERS Safety Report 8963815 (Version 1)
Quarter: 2012Q4

REPORT INFORMATION
  Report Type: Report from Study
  Country: DE (occurrence: DE)
  Receive Date: 20121213
  Receipt Date: 20121213
  Transmission Date: 20130627
  Serious: Yes (Death)
  Sender: FDA-Public Use
  Company Number: DE-UCBSA-072796

PATIENT
  Age: 81 Year
  Sex: Male
  Weight: 75 kg

DRUGS (11)
  1. NEUPRO [Suspect]
     Indication: PARKINSON^S DISEASE
     Route: 062
     Dates: start: 20100909, end: 20120810
  2. NEUPRO [Suspect]
     Indication: PARKINSON^S DISEASE
     Route: 062
     Dates: start: 20100408, end: 20100908
  3. NEUPRO [Suspect]
     Indication: PARKINSON^S DISEASE
     Route: 062
     Dates: start: 20100310, end: 20100407
  4. NEUPRO [Suspect]
     Indication: PARKINSON^S DISEASE
     Route: 062
     Dates: start: 20100211, end: 20100309
  5. MADOPAR [Suspect]
     Indication: PARKINSON^S DISEASE
     Dosage: SINGLE DOSE: 100/25MG
     Dates: start: 20111105, end: 20120810
  6. MADOPAR [Suspect]
     Indication: PARKINSON^S DISEASE
     Dosage: SINGLE DOSE: 100/25MG
     Dates: end: 20111104
  7. MADOPAR [Suspect]
     Indication: PARKINSON^S DISEASE
     Dates: end: 20120810
  8. MADOPAR [Suspect]
     Indication: PARKINSON^S DISEASE
     Dosage: FREQ: OTHER 5 X 3/4 TBL
     Dates: start: 20111208, end: 20120810
  9. MADOPAR [Suspect]
     Indication: PARKINSON^S DISEASE
     Dates: start: 20111104, end: 20111207
  10. TAMSULOSIN [Concomitant]
     Indication: BENIGN PROSTATIC HYPERPLASIA
     Dates: end: 20120810
  11. BERLTHYROX [Concomitant]
     Indication: HYPOTHYROIDISM
     Dates: end: 20120810

REACTIONS (1)
  - Death [Fatal]
